FAERS Safety Report 10613037 (Version 1)
Quarter: 2014Q4

REPORT INFORMATION
  Report Type: Spontaneous
  Country: AR (occurrence: AR)
  Receive Date: 20141127
  Receipt Date: 20141127
  Transmission Date: 20150529
  Serious: Yes (Death, Congenital Anomaly, Other)
  Sender: FDA-Public Use
  Company Number: PHHY2014AR155580

PATIENT
  Weight: 1.61 kg

DRUGS (6)
  1. URSODEOXYCHOLIC ACID [Suspect]
     Active Substance: URSODIOL
     Route: 064
  2. MYCOPHENOLATE MOFETIL. [Suspect]
     Active Substance: MYCOPHENOLATE MOFETIL
     Route: 064
  3. MEPREDNISONE [Suspect]
     Active Substance: MEPREDNISONE
     Route: 064
  4. CHOLESTYRAMINE. [Suspect]
     Active Substance: CHOLESTYRAMINE
     Route: 064
  5. CICLOSPORIN [Suspect]
     Active Substance: CYCLOSPORINE
     Route: 064
  6. DIPHENHYDRAMINE [Suspect]
     Active Substance: DIPHENHYDRAMINE
     Route: 064

REACTIONS (6)
  - Oesophageal atresia [Unknown]
  - Death [Fatal]
  - Foetal exposure during pregnancy [Unknown]
  - Hemivertebra [Unknown]
  - Premature baby [Unknown]
  - Low birth weight baby [Unknown]
